FAERS Safety Report 8209215-8 (Version None)
Quarter: 2012Q1

REPORT INFORMATION
  Report Type: 
  Country: None (occurrence: None)
  Receive Date: 20120314
  Receipt Date: 20120306
  Transmission Date: 20120608
  Serious: Yes (Hospitalization)
  Sender: FDA-Public Use
  Company Number: PHHY2012CN019470

PATIENT
  Age: 15 Year
  Sex: Male

DRUGS (8)
  1. METHOTREXATE [Suspect]
     Indication: JUVENILE ARTHRITIS
     Dosage: 12.5 MG, QW
  2. PREDNISONE TAB [Suspect]
     Indication: JUVENILE ARTHRITIS
     Dosage: 45 MG, PER DAY
  3. FOLIC ACID [Concomitant]
  4. VITAMIN D [Concomitant]
  5. PROTON PUMP INHIBITORS [Suspect]
  6. HYDROXYCHLOROQUINE SULFATE [Suspect]
     Indication: JUVENILE ARTHRITIS
     Dosage: 200 MG, PER DAY
  7. CALCIUM [Concomitant]
  8. PREDNISONE TAB [Suspect]
     Dosage: 7.5 MG, PER DAY

REACTIONS (6)
  - PYREXIA [None]
  - ABDOMINAL PAIN [None]
  - DIARRHOEA [None]
  - BEZOAR [None]
  - VOMITING [None]
  - NAUSEA [None]
